FAERS Safety Report 14220854 (Version 3)
Quarter: 2018Q1

REPORT INFORMATION
  Report Type: Spontaneous
  Country: US (occurrence: US)
  Receive Date: 20171124
  Receipt Date: 20180208
  Transmission Date: 20180508
  Serious: Yes (Hospitalization)
  Sender: FDA-Public Use
  Company Number: US-ELI_LILLY_AND_COMPANY-US201711006618

PATIENT
  Age: 10 Year
  Sex: Male
  Weight: 40 kg

DRUGS (17)
  1. ATIVAN [Suspect]
     Active Substance: LORAZEPAM
     Indication: ANXIETY
     Dosage: 1 MG, DAILY
     Route: 048
     Dates: start: 20170928
  2. DEFLAZACORT [Suspect]
     Active Substance: DEFLAZACORT
     Indication: DUCHENNE MUSCULAR DYSTROPHY
     Dosage: 22 MG, DAILY
     Route: 048
     Dates: start: 20160604
  3. ALENDRONATE [Concomitant]
     Active Substance: ALENDRONATE SODIUM
     Indication: BONE DISORDER
     Dosage: 35 MG, WEEKLY (1/W)
     Dates: start: 20160610
  4. METFORMIN [Concomitant]
     Active Substance: METFORMIN HYDROCHLORIDE
     Indication: INSULIN RESISTANCE
     Dosage: 750 MG, DAILY
     Route: 048
     Dates: start: 20160715, end: 20170828
  5. SEROQUEL [Concomitant]
     Active Substance: QUETIAPINE FUMARATE
     Indication: ANXIETY
     Dosage: 25 MG, OTHER (AS NEEDED)
     Route: 048
     Dates: start: 20171012
  6. PROZAC [Suspect]
     Active Substance: FLUOXETINE HYDROCHLORIDE
     Indication: ATTENTION DEFICIT/HYPERACTIVITY DISORDER
     Dosage: 20 MG, DAILY
     Route: 048
     Dates: start: 20160201, end: 20170928
  7. QUERCETIN [Suspect]
     Active Substance: QUERCETIN
     Indication: SUPPLEMENTATION THERAPY
     Dosage: 500 MG, DAILY
     Route: 048
     Dates: start: 20140822
  8. LISINOPRIL. [Concomitant]
     Active Substance: LISINOPRIL
     Indication: CARDIAC DISORDER
     Dosage: 2.5 MG, DAILY
     Route: 048
     Dates: start: 20110809
  9. PROZAC [Suspect]
     Active Substance: FLUOXETINE HYDROCHLORIDE
     Indication: ANXIETY
     Dosage: 30 MG, DAILY
     Route: 048
     Dates: start: 20170928
  10. COENZYME Q10 [Concomitant]
     Active Substance: UBIDECARENONE
     Indication: SUPPLEMENTATION THERAPY
     Dosage: 200 MG, DAILY
     Route: 048
     Dates: start: 20121002
  11. L-ARGININE                         /00126101/ [Concomitant]
     Active Substance: ARGININE
     Indication: SUPPLEMENTATION THERAPY
     Dosage: 500 MG, DAILY
     Route: 048
     Dates: start: 20100817
  12. VITAMIN D [Concomitant]
     Active Substance: CHOLECALCIFEROL
     Indication: BONE DISORDER
     Dosage: 5000 U, DAILY
     Route: 048
     Dates: start: 20100601
  13. OMEGA 3                            /01333901/ [Concomitant]
     Active Substance: FISH OIL\TOCOPHEROL
     Indication: HIGH DENSITY LIPOPROTEIN DECREASED
  14. METFORMIN [Concomitant]
     Active Substance: METFORMIN HYDROCHLORIDE
     Dosage: 1250 MG, DAILY
     Route: 048
     Dates: start: 20170828
  15. OMEGA 3                            /01333901/ [Concomitant]
     Active Substance: FISH OIL\TOCOPHEROL
     Indication: BLOOD TRIGLYCERIDES INCREASED
     Dosage: 280 MG, DAILY
     Route: 048
     Dates: start: 20160610
  16. CALCIUM [Concomitant]
     Active Substance: CALCIUM
     Indication: BONE DISORDER
     Dosage: 1000 MG, DAILY
     Route: 048
     Dates: start: 20100817
  17. BENADRYL [Suspect]
     Active Substance: DIPHENHYDRAMINE HYDROCHLORIDE
     Indication: ANXIETY
     Dosage: 25 MG, PRN
     Route: 048
     Dates: start: 20170908

REACTIONS (4)
  - Off label use [Unknown]
  - Vitamin B12 decreased [Unknown]
  - Tibia fracture [Unknown]
  - Anxiety [Recovering/Resolving]

NARRATIVE: CASE EVENT DATE: 20170815
